FAERS Safety Report 12598854 (Version 1)
Quarter: 2016Q3

REPORT INFORMATION
  Report Type: Spontaneous
  Country: US (occurrence: None)
  Receive Date: 20160726
  Receipt Date: 20160726
  Transmission Date: 20161109
  Serious: Yes (Death)
  Sender: FDA-Public Use
  Company Number: None

PATIENT
  Age: 71 Year
  Sex: Female

DRUGS (14)
  1. ACYCLOVIR. [Concomitant]
     Active Substance: ACYCLOVIR
  2. ELIQUIS [Concomitant]
     Active Substance: APIXABAN
  3. POTASSIUM [Concomitant]
     Active Substance: POTASSIUM
  4. PROAIR HFA [Concomitant]
     Active Substance: ALBUTEROL SULFATE
  5. SYNTHROID [Concomitant]
     Active Substance: LEVOTHYROXINE SODIUM
  6. LYRICA [Concomitant]
     Active Substance: PREGABALIN
  7. LEVAQUIN [Concomitant]
     Active Substance: LEVOFLOXACIN
  8. ZOFRAN [Concomitant]
     Active Substance: ONDANSETRON HYDROCHLORIDE
  9. PROTONIX [Suspect]
     Active Substance: PANTOPRAZOLE SODIUM
  10. PREDNISONE. [Concomitant]
     Active Substance: PREDNISONE
  11. FLONASE [Suspect]
     Active Substance: FLUTICASONE PROPIONATE
  12. BREO ELLIPTA [Concomitant]
     Active Substance: FLUTICASONE FUROATE\VILANTEROL TRIFENATATE
  13. FARYDAK [Suspect]
     Active Substance: PANOBINOSTAT
     Indication: PLASMA CELL MYELOMA
     Dosage: 3 CAPS TIW DAYS 1,3,5,8,10,12 THEN ONE WEEK OFF PO
     Route: 048
     Dates: start: 20160720
  14. OXYCODONE [Concomitant]
     Active Substance: OXYCODONE

REACTIONS (1)
  - Death [None]

NARRATIVE: CASE EVENT DATE: 201607
